FAERS Safety Report 4838554-3 (Version None)
Quarter: 2005Q4

REPORT INFORMATION
  Report Type: 
  Country: None (occurrence: None)
  Receive Date: 20051123
  Receipt Date: 20051108
  Transmission Date: 20060501
  Serious: Yes (Hospitalization)
  Sender: FDA-Public Use
  Company Number: 200511IM000719

PATIENT
  Age: 52 Year
  Sex: Male
  Weight: 83.0083 kg

DRUGS (4)
  1. INFERGEN [Suspect]
     Indication: HEPATITIS C
     Dosage: 15 UG QD, SUBCUTANEOUS
     Route: 058
     Dates: start: 20051031
  2. RIBAVIRIN [Concomitant]
  3. LACTULOSE [Concomitant]
  4. NADOLOL [Concomitant]

REACTIONS (2)
  - ASTHMA [None]
  - PNEUMONIA [None]
